FAERS Safety Report 6634676-5 (Version None)
Quarter: 2010Q1

REPORT INFORMATION
  Report Type: 
  Country: None (occurrence: None)
  Receive Date: 20100312
  Receipt Date: 20100312
  Transmission Date: 20100710
  Serious: Yes (Hospitalization)
  Sender: FDA-Public Use
  Company Number: None

PATIENT
  Age: 66 Year
  Sex: Male
  Weight: 96 kg

DRUGS (10)
  1. AMIODARONE HCL [Suspect]
     Indication: CARDIAC FAILURE CONGESTIVE
     Dosage: 200MG TWICE DAILY ORAL, CHRONIC
     Route: 048
  2. AMIODARONE HCL [Suspect]
     Indication: DYSTHYMIC DISORDER
     Dosage: 200MG TWICE DAILY ORAL, CHRONIC
     Route: 048
  3. ASPIRIN [Concomitant]
  4. SIMVASTATIN [Concomitant]
  5. SPIRONOLACTONE [Concomitant]
  6. CARVEDILOL [Concomitant]
  7. GLYBURIDE [Concomitant]
  8. QUINAPRIL [Concomitant]
  9. FUROSEMIDE [Concomitant]
  10. LEVOTHYROXINE SODIUM [Concomitant]

REACTIONS (1)
  - PULMONARY FIBROSIS [None]
